FAERS Safety Report 18863096 (Version 3)
Quarter: 2021Q1

REPORT INFORMATION
  Report Type: Spontaneous
  Country: FR (occurrence: FR)
  Receive Date: 20210209
  Receipt Date: 20210324
  Transmission Date: 20210420
  Serious: Yes (Hospitalization, Other)
  Sender: FDA-Public Use
  Company Number: FR-CELLTRION INC.-2021FR001278

PATIENT

DRUGS (7)
  1. RITUXIMAB (UNKNOWN) [Suspect]
     Active Substance: RITUXIMAB
     Indication: MARGINAL ZONE LYMPHOMA
     Dosage: 90 MG/M2 (DOSAGE TEXT: LATEST DOSE RECEIVED ON 16/MAR/2020)
     Route: 065
     Dates: start: 20200312
  2. RITUXIMAB (UNKNOWN) [Suspect]
     Active Substance: RITUXIMAB
     Dosage: UNK
     Route: 065
     Dates: start: 20200316
  3. BENDAMUSTINE [Suspect]
     Active Substance: BENDAMUSTINE
     Indication: OCULAR LYMPHOMA
     Dosage: 70 MG/M2 (DOSAGE TEXT: LATEST DOSE RECEIVED ON 16/MAR/2020)
     Route: 065
     Dates: start: 20200212
  4. PREDNISONE. [Concomitant]
     Active Substance: PREDNISONE
     Dosage: 50 MG, QD (DOSAGE TEXT: FOR 7 DAYS)
     Route: 065
  5. RITUXIMAB (UNKNOWN) [Suspect]
     Active Substance: RITUXIMAB
     Indication: OCULAR LYMPHOMA
     Dosage: UNK
     Route: 065
     Dates: start: 20200212
  6. LOPINAVIR;RITONAVIR [Concomitant]
     Active Substance: LOPINAVIR\RITONAVIR
  7. BENDAMUSTINE [Suspect]
     Active Substance: BENDAMUSTINE
     Indication: MARGINAL ZONE LYMPHOMA
     Dosage: 90 MG/M2
     Route: 065
     Dates: start: 20200316

REACTIONS (11)
  - Lymphopenia [Recovered/Resolved]
  - Off label use [Unknown]
  - COVID-19 [Recovered/Resolved]
  - Cytokine release syndrome [Recovered/Resolved]
  - Pyrexia [Recovered/Resolved]
  - COVID-19 pneumonia [Recovered/Resolved]
  - Fatigue [Recovered/Resolved]
  - Diarrhoea [Recovered/Resolved]
  - Oxygen saturation decreased [Recovered/Resolved]
  - Pneumonia [Recovered/Resolved]
  - Rebound effect [Recovered/Resolved]

NARRATIVE: CASE EVENT DATE: 2020
